FAERS Safety Report 7361371-X (Version None)
Quarter: 2011Q1

REPORT INFORMATION
  Report Type: 
  Country: None (occurrence: None)
  Receive Date: 20110318
  Receipt Date: 20110309
  Transmission Date: 20110831
  Serious: Yes (Death)
  Sender: FDA-Public Use
  Company Number: US-GENZYME-CERZ-1001864

PATIENT
  Sex: Male
  Weight: 15 kg

DRUGS (1)
  1. CEREZYME [Suspect]
     Indication: GAUCHER'S DISEASE
     Dosage: 30 U, Q2W
     Route: 042
     Dates: start: 20060908, end: 20100901

REACTIONS (1)
  - DEATH [None]
